FAERS Safety Report 26103643 (Version 1)
Quarter: 2025Q4

REPORT INFORMATION
  Report Type: Spontaneous
  Country: EU (occurrence: EU)
  Receive Date: 20251129
  Receipt Date: 20251129
  Transmission Date: 20260119
  Serious: Yes (Life-Threatening, Hospitalization)
  Sender: AMGEN
  Company Number: EU-AMGEN-DEUSP2025235145

PATIENT

DRUGS (2)
  1. IMDELLTRA [Suspect]
     Active Substance: TARLATAMAB-DLLE
     Indication: Small cell lung cancer
     Dosage: UNK,  FIRST FEW CYCLES
     Route: 065
  2. TOCILIZUMAB [Concomitant]
     Active Substance: TOCILIZUMAB
     Dosage: UNK

REACTIONS (2)
  - Intensive care [Recovered/Resolved]
  - Off label use [Unknown]
